FAERS Safety Report 12926629 (Version 1)
Quarter: 2016Q4

REPORT INFORMATION
  Report Type: Spontaneous
  Country: DE (occurrence: DE)
  Receive Date: 20161109
  Receipt Date: 20161109
  Transmission Date: 20170207
  Serious: Yes (Life-Threatening, Hospitalization, Other)
  Sender: FDA-Public Use
  Company Number: DE-APOPHARMA USA, INC.-2016AP014424

PATIENT
  Age: 5 Year
  Sex: Female

DRUGS (6)
  1. ALKERAN [Suspect]
     Active Substance: MELPHALAN
     Indication: STEM CELL TRANSPLANT
     Route: 065
  2. ALEMTUZUMAB [Suspect]
     Active Substance: ALEMTUZUMAB
     Indication: STEM CELL TRANSPLANT
     Route: 065
  3. ANTITHYMOCYTE IMMUNOGLOBULIN [Suspect]
     Active Substance: THYMOCYTE IMMUNE GLOBULIN NOS
     Indication: STEM CELL TRANSPLANT
     Route: 065
  4. THIOTEPA. [Suspect]
     Active Substance: THIOTEPA
     Indication: STEM CELL TRANSPLANT
     Route: 065
  5. FLUDARABINE [Suspect]
     Active Substance: FLUDARABINE PHOSPHATE
     Indication: STEM CELL TRANSPLANT
     Route: 065
  6. CYCLOPHOSPHAMIDE. [Suspect]
     Active Substance: CYCLOPHOSPHAMIDE
     Indication: STEM CELL TRANSPLANT
     Route: 065

REACTIONS (8)
  - Epstein-Barr virus associated lymphoproliferative disorder [Recovered/Resolved]
  - Epstein-Barr virus infection [Unknown]
  - Herpes simplex [Recovered/Resolved]
  - Stomatitis [Recovered/Resolved]
  - Adenovirus infection [Recovered/Resolved]
  - Herpes simplex [None]
  - Pharyngitis [Recovered/Resolved]
  - Encephalitis [Recovered/Resolved]
